FAERS Safety Report 12744237 (Version 1)
Quarter: 2016Q3

REPORT INFORMATION
  Report Type: Report from Study
  Country: PL (occurrence: PL)
  Receive Date: 20160914
  Receipt Date: 20160914
  Transmission Date: 20161109
  Serious: Yes (Other)
  Sender: FDA-Public Use
  Company Number: PL-TEVA-692044ISR

PATIENT

DRUGS (1)
  1. TORASEMIDE [Suspect]
     Active Substance: TORSEMIDE

REACTIONS (4)
  - Renal impairment [Unknown]
  - Drug interaction [Unknown]
  - Oedema peripheral [Unknown]
  - Renal failure [Unknown]
